FAERS Safety Report 8504372-8 (Version None)
Quarter: 2012Q3

REPORT INFORMATION
  Report Type: 
  Country: None (occurrence: None)
  Receive Date: 20120711
  Receipt Date: 20120629
  Transmission Date: 20120928
  Serious: No
  Sender: FDA-Public Use
  Company Number: US-ASTRAZENECA-2012SE44978

PATIENT
  Age: 41 Year
  Sex: Male

DRUGS (4)
  1. SYMBICORT [Suspect]
     Route: 055
     Dates: start: 20120524
  2. RHINOCORT [Suspect]
     Route: 045
     Dates: start: 20120524
  3. TOPROL-XL [Concomitant]
  4. CRESTOR [Suspect]
     Route: 048
     Dates: start: 20120524

REACTIONS (3)
  - ESSENTIAL HYPERTENSION [None]
  - DEPRESSION [None]
  - OVERWEIGHT [None]
